FAERS Safety Report 10261918 (Version 1)
Quarter: 2014Q2

REPORT INFORMATION
  Report Type: Spontaneous
  Country: US (occurrence: US)
  Receive Date: 20140626
  Receipt Date: 20140626
  Transmission Date: 20141212
  Serious: Yes (Death, Other)
  Sender: FDA-Public Use
  Company Number: PHHY2014US076497

PATIENT
  Age: 90 Year
  Sex: Male

DRUGS (3)
  1. HEPARIN [Suspect]
     Indication: ANTICOAGULANT THERAPY
     Dosage: 13000 U, UNK
     Route: 042
  2. ASPIRIN [Concomitant]
     Indication: ANTIPLATELET THERAPY
  3. CLOPIDOGREL [Concomitant]
     Indication: ANTIPLATELET THERAPY

REACTIONS (2)
  - Thrombosis [Fatal]
  - Heparin resistance [Unknown]
